FAERS Safety Report 7929148-1 (Version None)
Quarter: 2011Q4

REPORT INFORMATION
  Report Type: 
  Country: None (occurrence: None)
  Receive Date: 20111120
  Receipt Date: 20111024
  Transmission Date: 20120403
  Serious: No
  Sender: FDA-Public Use
  Company Number: US-ROXANE LABORATORIES, INC.-2011-RO-01145RO

PATIENT
  Sex: Female

DRUGS (21)
  1. IMURAN [Concomitant]
     Indication: CROHN'S DISEASE
  2. NYQUIL [Concomitant]
     Indication: BRONCHITIS
  3. CLONAZEPAM [Concomitant]
     Indication: SLEEP DISORDER
  4. ACETAMINOPHEN [Concomitant]
     Route: 048
  5. ZANAFLEX [Concomitant]
     Indication: PAIN
     Route: 048
  6. BUTORPHANOL TARATRATE [Suspect]
     Indication: MIGRAINE
     Route: 055
  7. DEPO-PROVERA [Concomitant]
     Indication: UTERINE HAEMORRHAGE
     Route: 030
  8. ELAVIL [Concomitant]
     Indication: DEPRESSION
  9. ELAVIL [Concomitant]
     Indication: POST-TRAUMATIC STRESS DISORDER
  10. FIORICET [Concomitant]
     Indication: MIGRAINE
     Route: 048
  11. PHENERGAN [Concomitant]
     Indication: NAUSEA
     Route: 030
  12. MENSTRUAL PAIN RELIEF [Concomitant]
  13. BUTORPHANOL TARATRATE [Suspect]
     Indication: PAIN
  14. PROTONIX [Concomitant]
     Indication: GASTROOESOPHAGEAL REFLUX DISEASE
  15. PHENERGAN [Concomitant]
     Indication: VOMITING
  16. WARFARIN SODIUM [Concomitant]
     Indication: THROMBOSIS
  17. ELAVIL [Concomitant]
     Indication: BIPOLAR DISORDER
  18. SYMBICORT [Concomitant]
     Indication: ASTHMA
     Route: 055
  19. XOPENEX HFA [Concomitant]
     Indication: ASTHMA
     Route: 055
  20. CATAPRES [Concomitant]
     Indication: HYPERTENSION
  21. PROTONIX [Concomitant]
     Indication: HIATUS HERNIA

REACTIONS (1)
  - DRUG INEFFECTIVE [None]
